FAERS Safety Report 6742199-8 (Version None)
Quarter: 2010Q2

REPORT INFORMATION
  Report Type: 
  Country: None (occurrence: None)
  Receive Date: 20100524
  Receipt Date: 20100517
  Transmission Date: 20101027
  Serious: Yes (Hospitalization)
  Sender: FDA-Public Use
  Company Number: 012019

PATIENT
  Sex: Female
  Weight: 55 kg

DRUGS (4)
  1. KEPPRA [Suspect]
     Indication: PARTIAL SEIZURES
     Dosage: ORAL, 3 G ORAL; 2.5 G ORAL; 2.25 G ORAL
     Route: 048
     Dates: start: 20040101
  2. KEPPRA [Suspect]
     Indication: PARTIAL SEIZURES
     Dosage: ORAL, 3 G ORAL; 2.5 G ORAL; 2.25 G ORAL
     Route: 048
     Dates: start: 20090701
  3. TEGRETOL [Suspect]
     Indication: PARTIAL SEIZURES
     Dosage: 1 G ORAL; INCREASED DOSE ORAL
     Route: 048
     Dates: start: 20040101
  4. PROPRANOLOL [Suspect]
     Indication: MIGRAINE
     Dosage: 160 MG ORAL; INCREASED DOSE ORAL
     Route: 048
     Dates: start: 20080101

REACTIONS (1)
  - NEUROPATHY PERIPHERAL [None]
